FAERS Safety Report 5086242-3 (Version None)
Quarter: 2006Q3

REPORT INFORMATION
  Report Type: 
  Country: None (occurrence: None)
  Receive Date: 20060703
  Receipt Date: 20060222
  Transmission Date: 20061208
  Serious: No
  Sender: FDA-Public Use
  Company Number: 2006S1001628

PATIENT
  Age: 32 Year
  Sex: Male

DRUGS (5)
  1. CLOZAPINE [Suspect]
     Indication: SCHIZOPHRENIA
     Dosage: 40 MG; QD; ORAL
     Route: 048
  2. FLUVOXAMINE [Concomitant]
  3. HYDROCHLOROTHIAZDE TAB [Concomitant]
  4. DEXAMFETAMINE SULFATE/AMFETAMINE SULFATE [Concomitant]
  5. DEXAMFETAMINE SACCHARATE/AMFETAMINE SULFATE [Concomitant]

REACTIONS (1)
  - GRANULOCYTOPENIA [None]
